FAERS Safety Report 22233079 (Version 1)
Quarter: 2023Q2

REPORT INFORMATION
  Report Type: Spontaneous
  Country: US (occurrence: None)
  Receive Date: 20230420
  Receipt Date: 20230420
  Transmission Date: 20230721
  Serious: No
  Sender: FDA-Public Use
  Company Number: US-ROCHE-3045776

PATIENT
  Sex: Female

DRUGS (2)
  1. ESBRIET [Suspect]
     Active Substance: PIRFENIDONE
     Indication: Idiopathic pulmonary fibrosis
     Route: 048
     Dates: start: 20220208
  2. ESBRIET [Suspect]
     Active Substance: PIRFENIDONE
     Indication: Interstitial lung disease
     Dosage: TAKE 1 CAPSULE BY MOUTH 3 TIMES A DAY FOR 7 DAYS THEN 2 CAPSULES BY MOUTH 3 TIMES A DAY FOR 7 DAYS A
     Route: 048
     Dates: start: 20220204

REACTIONS (4)
  - Chest pain [Unknown]
  - Headache [Unknown]
  - Dizziness [Unknown]
  - Chest discomfort [Unknown]
